FAERS Safety Report 8478645-1 (Version None)
Quarter: 2012Q2

REPORT INFORMATION
  Report Type: 
  Country: None (occurrence: None)
  Receive Date: 20120629
  Receipt Date: 20120627
  Transmission Date: 20120825
  Serious: Yes (Death)
  Sender: FDA-Public Use
  Company Number: JP-PFIZER INC-2011090040

PATIENT
  Age: 74 Year
  Sex: Male
  Weight: 59 kg

DRUGS (7)
  1. SUTENT [Suspect]
     Indication: RENAL CELL CARCINOMA
     Dosage: 50 MG, 1X/DAY
     Route: 048
     Dates: start: 20110406, end: 20110419
  2. ESTRACYT [Concomitant]
     Indication: PROSTATE CANCER
     Dosage: 156.7 MG, 1X/DAY
     Route: 048
     Dates: start: 20050301
  3. MUCOSTA [Concomitant]
     Dosage: 100 MG, 2X/DAY
     Route: 048
     Dates: start: 20110311
  4. ZOLADEX [Concomitant]
     Indication: PROSTATE CANCER
     Dosage: 10.8 MG, ONCE A 84 DAYS
     Route: 058
     Dates: start: 20030101
  5. RABEPRAZOLE SODIUM [Concomitant]
     Indication: ABDOMINAL DISCOMFORT
     Dosage: 10 MG, 1X/DAY
     Route: 048
     Dates: start: 20110318
  6. VOLTAREN [Concomitant]
     Indication: PAIN
     Dosage: 25 MG, 2X/DAY
     Route: 048
     Dates: start: 20110311
  7. SUTENT [Suspect]
     Dosage: 37.5 MG, 1X/DAY
     Route: 048
     Dates: start: 20110420, end: 20110422

REACTIONS (3)
  - PLATELET COUNT DECREASED [None]
  - WHITE BLOOD CELL COUNT DECREASED [None]
  - RENAL IMPAIRMENT [None]
